FAERS Safety Report 19660629 (Version 1)
Quarter: 2021Q3

REPORT INFORMATION
  Report Type: Spontaneous
  Country: US (occurrence: US)
  Receive Date: 20210805
  Receipt Date: 20210805
  Transmission Date: 20211014
  Serious: No
  Sender: FDA-Public Use
  Company Number: US-PFIZER INC-2021664720

PATIENT
  Age: 56 Year
  Sex: Female

DRUGS (11)
  1. OXYCODONE HYDROCHLORIDE. [Concomitant]
     Active Substance: OXYCODONE HYDROCHLORIDE
  2. FAMOTIDINE. [Concomitant]
     Active Substance: FAMOTIDINE
     Dosage: 10 MG
  3. FULVESTRANT. [Concomitant]
     Active Substance: FULVESTRANT
     Dosage: 250MG/5ML
  4. TRAMADOL HCL [Concomitant]
     Active Substance: TRAMADOL HYDROCHLORIDE
     Dosage: 50 MG
  5. VITAMINS NOS [Concomitant]
     Active Substance: VITAMINS
  6. VITAMIN E NOS [Concomitant]
     Active Substance: .ALPHA.-TOCOPHEROL
     Dosage: 1000 UNIT
  7. IBRANCE [Suspect]
     Active Substance: PALBOCICLIB
     Indication: BREAST CANCER FEMALE
     Dosage: 125 MG, CYCLIC (1 DAILY FOR 21 DAYS)
     Route: 048
     Dates: start: 20210523
  8. CALCIUM [Concomitant]
     Active Substance: CALCIUM
     Dosage: 500 (1250)
  9. CARAFATE [Concomitant]
     Active Substance: SUCRALFATE
  10. VITAMIN B?1 [Concomitant]
     Active Substance: THIAMINE HYDROCHLORIDE
     Dosage: 100 MG
  11. VITAMIN D [VITAMIN D NOS] [Concomitant]
     Active Substance: VITAMIN D NOS
     Dosage: 10 UG

REACTIONS (6)
  - Alopecia [Unknown]
  - Therapeutic response unexpected [Unknown]
  - Fatigue [Unknown]
  - Decreased appetite [Unknown]
  - Insomnia [Unknown]
  - Blood count abnormal [Unknown]
